FAERS Safety Report 6931449-0 (Version None)
Quarter: 2010Q3

REPORT INFORMATION
  Report Type: 
  Country: None (occurrence: None)
  Receive Date: 20100819
  Receipt Date: 20100813
  Transmission Date: 20110219
  Serious: Yes (Other)
  Sender: FDA-Public Use
  Company Number: HQWYE763803AUG06

PATIENT
  Sex: Female

DRUGS (2)
  1. PREMARIN [Suspect]
     Indication: HORMONE REPLACEMENT THERAPY
  2. PROVERA [Suspect]
     Indication: HORMONE REPLACEMENT THERAPY

REACTIONS (13)
  - BRAIN MASS [None]
  - BRAIN OEDEMA [None]
  - BREAST CANCER FEMALE [None]
  - BREAST CANCER METASTATIC [None]
  - METASTASES TO BONE [None]
  - METASTASES TO CENTRAL NERVOUS SYSTEM [None]
  - METASTASES TO LYMPH NODES [None]
  - METASTASES TO MENINGES [None]
  - METASTASES TO SOFT TISSUE [None]
  - METASTASES TO SPINE [None]
  - OESTROGEN RECEPTOR ASSAY POSITIVE [None]
  - PAGET'S DISEASE OF THE BREAST [None]
  - PROGESTERONE RECEPTOR ASSAY POSITIVE [None]
